FAERS Safety Report 9295145 (Version 1)
Quarter: 2013Q2

REPORT INFORMATION
  Report Type: Spontaneous
  Country: NZ (occurrence: NZ)
  Receive Date: 20130517
  Receipt Date: 20130517
  Transmission Date: 20140414
  Serious: Yes (Other)
  Sender: FDA-Public Use
  Company Number: NZ-009507513-1305NZL005373

PATIENT
  Sex: Male

DRUGS (1)
  1. FOSAMAX PLUS [Suspect]
     Indication: OSTEOPOROSIS
     Dosage: UNK
     Dates: start: 2012

REACTIONS (5)
  - Suicide attempt [Unknown]
  - Tooth disorder [Unknown]
  - Agitation [Unknown]
  - Anger [Unknown]
  - Suicidal ideation [Unknown]
